FAERS Safety Report 9474579 (Version 1)
Quarter: 2013Q3

REPORT INFORMATION
  Report Type: Spontaneous
  Country: US (occurrence: US)
  Receive Date: 20130823
  Receipt Date: 20130823
  Transmission Date: 20140515
  Serious: Yes (Disabling, Other)
  Sender: FDA-Public Use
  Company Number: US-GLAXOSMITHKLINE-A1037493A

PATIENT
  Age: 81 Year
  Sex: Male

DRUGS (3)
  1. PROMACTA [Suspect]
     Indication: IMMUNE THROMBOCYTOPENIC PURPURA
     Dosage: 75MG PER DAY
     Route: 048
     Dates: start: 201307
  2. RITUXAN [Concomitant]
  3. OXYGEN [Concomitant]

REACTIONS (2)
  - Oxygen supplementation [Recovered/Resolved]
  - Dyspnoea [Recovered/Resolved]
